FAERS Safety Report 6904222-7 (Version None)
Quarter: 2010Q3

REPORT INFORMATION
  Report Type: 
  Country: None (occurrence: None)
  Receive Date: 20100804
  Receipt Date: 20090326
  Transmission Date: 20110219
  Serious: No
  Sender: FDA-Public Use
  Company Number: US-PFIZER INC-2009189611

PATIENT
  Sex: Male
  Weight: 99.8 kg

DRUGS (1)
  1. LYRICA [Suspect]
     Indication: NEURALGIA
     Dosage: 175 MG, 1X/DAY
     Dates: start: 20090301

REACTIONS (1)
  - AMNESIA [None]
